FAERS Safety Report 14126338 (Version 3)
Quarter: 2018Q2

REPORT INFORMATION
  Report Type: Not Available
  Country: US (occurrence: US)
  Receive Date: 20171025
  Receipt Date: 20180509
  Transmission Date: 20180711
  Serious: No
  Sender: FDA-Public Use
  Company Number: US-NEUROCRINE BIOSCIENCES INC.-2017NBI01053

PATIENT
  Age: 85 Year
  Sex: Female

DRUGS (16)
  1. INGREZZA [Suspect]
     Active Substance: VALBENAZINE
     Route: 048
     Dates: start: 2018
  2. ATENOLOL. [Concomitant]
     Active Substance: ATENOLOL
     Indication: BLOOD PRESSURE MEASUREMENT
  3. ATENOLOL HCTZ [Concomitant]
     Indication: BLOOD PRESSURE MEASUREMENT
     Dosage: 50/25 MG IN THE MORNING
  4. KELP [Concomitant]
     Active Substance: KELP
     Indication: PRODUCT USED FOR UNKNOWN INDICATION
  5. SEROQUEL [Concomitant]
     Active Substance: QUETIAPINE FUMARATE
  6. ALLOPURINOL. [Concomitant]
     Active Substance: ALLOPURINOL
     Indication: GOUT
  7. ASPIRIN 81 [Concomitant]
     Active Substance: ASPIRIN
     Dosage: MONDAY WEDNESDAY FRIDAY FOR STROKE PREVENTION
  8. VITAMIN B12 [Concomitant]
     Active Substance: CYANOCOBALAMIN
     Indication: VITAMIN B12 DEFICIENCY
     Route: 060
  9. NUEDEXTA [Concomitant]
     Active Substance: DEXTROMETHORPHAN HYDROBROMIDE\QUINIDINE SULFATE
     Indication: AFFECT LABILITY
     Dosage: 20/10 MG TWICE A DAY
  10. VITAMIN D3 [Concomitant]
     Active Substance: CHOLECALCIFEROL
     Indication: VITAMIN D DEFICIENCY
  11. SEROQUEL [Concomitant]
     Active Substance: QUETIAPINE FUMARATE
     Indication: BIPOLAR DISORDER
  12. INGREZZA [Suspect]
     Active Substance: VALBENAZINE
     Indication: TARDIVE DYSKINESIA
     Route: 048
     Dates: start: 20170619
  13. INGREZZA [Suspect]
     Active Substance: VALBENAZINE
     Dosage: ALTERNATE BETWEEN 40 MG INGREZZA AND 80 MG INGREZZA EVERY OTHER DAY
     Route: 048
     Dates: start: 20170619
  14. COSAMINE [Concomitant]
     Indication: ARTHRITIS
  15. DICLOFENAC [Concomitant]
     Active Substance: DICLOFENAC
     Indication: OSTEOARTHRITIS
     Route: 061
  16. VITAMIN C [Concomitant]
     Active Substance: ASCORBIC ACID
     Indication: PRODUCT USED FOR UNKNOWN INDICATION

REACTIONS (12)
  - Dysphonia [Unknown]
  - Joint stiffness [Unknown]
  - Agitation [Unknown]
  - Muscle tightness [Not Recovered/Not Resolved]
  - Drooling [Recovered/Resolved]
  - Depression [Unknown]
  - Salivary hypersecretion [Unknown]
  - Insomnia [Unknown]
  - Lethargy [Unknown]
  - Gait disturbance [Recovered/Resolved]
  - Tongue movement disturbance [Not Recovered/Not Resolved]
  - Somnolence [Not Recovered/Not Resolved]

NARRATIVE: CASE EVENT DATE: 2017
